FAERS Safety Report 10926822 (Version 3)
Quarter: 2017Q1

REPORT INFORMATION
  Report Type: Spontaneous
  Country: US (occurrence: US)
  Receive Date: 20150318
  Receipt Date: 20170201
  Transmission Date: 20170428
  Serious: Yes (Death, Hospitalization, Other)
  Sender: FDA-Public Use
  Company Number: US-MERCK-1503USA008847

PATIENT
  Sex: Male
  Weight: 79.37 kg

DRUGS (2)
  1. JANUVIA [Suspect]
     Active Substance: SITAGLIPTIN PHOSPHATE
     Indication: TYPE 2 DIABETES MELLITUS
     Dosage: 100 MG, QD
     Route: 048
     Dates: start: 201108, end: 201206
  2. JANUMET [Suspect]
     Active Substance: METFORMIN HYDROCHLORIDE\SITAGLIPTIN PHOSPHATE
     Indication: TYPE 2 DIABETES MELLITUS
     Dosage: 500/1000 MG 2 TABS DAILY
     Route: 048
     Dates: start: 201207, end: 201211

REACTIONS (7)
  - Gastrointestinal haemorrhage [Unknown]
  - Central venous catheterisation [Unknown]
  - Gallbladder operation [Unknown]
  - Pancreatic carcinoma [Unknown]
  - Bladder neoplasm [Unknown]
  - Hepatic failure [Unknown]
  - Death [Fatal]

NARRATIVE: CASE EVENT DATE: 201110
